FAERS Safety Report 5198694-9 (Version None)
Quarter: 2007Q1

REPORT INFORMATION
  Report Type: 
  Country: None (occurrence: None)
  Receive Date: 20070104
  Receipt Date: 20061227
  Transmission Date: 20070707
  Serious: Yes (Other)
  Sender: FDA-Public Use
  Company Number: 2006UW28588

PATIENT
  Age: 45 Year
  Sex: Female
  Weight: 63.5 kg

DRUGS (3)
  1. NOLVADEX [Suspect]
     Indication: CYST
     Route: 048
     Dates: start: 20030101, end: 20050101
  2. NOLVADEX [Suspect]
     Indication: BREAST NEOPLASM
     Route: 048
     Dates: start: 20030101, end: 20050101
  3. NOLVADEX [Suspect]
     Indication: HYPERPLASIA
     Route: 048
     Dates: start: 20030101, end: 20050101

REACTIONS (6)
  - BLOOD TRIGLYCERIDES INCREASED [None]
  - BREAST CYST [None]
  - BREAST DISORDER [None]
  - BREAST ENLARGEMENT [None]
  - BREAST PAIN [None]
  - RASH [None]
